FAERS Safety Report 11519965 (Version 2)
Quarter: 2017Q4

REPORT INFORMATION
  Report Type: Spontaneous
  Country: US (occurrence: US)
  Receive Date: 20150918
  Receipt Date: 20171005
  Transmission Date: 20180320
  Serious: Yes (Hospitalization)
  Sender: FDA-Public Use
  Company Number: US-RB-068110-14

PATIENT
  Age: 49 Year
  Sex: Male
  Weight: 88 kg

DRUGS (11)
  1. BUPRENORPHINE. [Suspect]
     Active Substance: BUPRENORPHINE
     Indication: NECK PAIN
     Dosage: 4 MG DAILY
     Route: 048
     Dates: start: 2011, end: 20140330
  2. GLYBURIDE W/METFORMIN [Concomitant]
     Active Substance: GLYBURIDE\METFORMIN
     Indication: TYPE 2 DIABETES MELLITUS
     Dosage: UNK
     Route: 048
     Dates: start: 2006
  3. FISH OIL [Concomitant]
     Active Substance: FISH OIL
     Indication: NUTRITIONAL SUPPLEMENTATION
     Dosage: UNK
     Route: 048
     Dates: start: 2008
  4. BOCOCIZUMAB [Concomitant]
     Active Substance: BOCOCIZUMAB
     Indication: HYPERLIPIDAEMIA
     Dosage: 150 MG, EVERY TWO WEEKS
     Route: 058
     Dates: start: 20140108, end: 20140319
  5. SERTRALINE [Concomitant]
     Active Substance: SERTRALINE HYDROCHLORIDE
     Indication: DEPRESSION
     Dosage: UNK
     Route: 048
     Dates: start: 2007
  6. COZAAR [Concomitant]
     Active Substance: LOSARTAN POTASSIUM
     Indication: PRODUCT USED FOR UNKNOWN INDICATION
     Dosage: UNK
     Route: 048
     Dates: start: 1998
  7. TETANUS ANTITOXIN [Concomitant]
     Active Substance: TETANUS ANTITOXIN
     Indication: PROPHYLAXIS
     Dosage: UNK
     Route: 065
     Dates: start: 20140203, end: 20140203
  8. BOCOCIZUMAB [Concomitant]
     Active Substance: BOCOCIZUMAB
     Dosage: 150 MG, EVERY TWO WEEKS
     Route: 058
     Dates: start: 2014, end: 20141224
  9. SIMVASTATIN. [Concomitant]
     Active Substance: SIMVASTATIN
     Indication: HYPERLIPIDAEMIA
     Dosage: UNK
     Route: 048
     Dates: start: 2004
  10. FENOFIBRATE. [Concomitant]
     Active Substance: FENOFIBRATE
     Indication: HYPERLIPIDAEMIA
     Dosage: UNK
     Route: 048
     Dates: start: 2010
  11. MULTIVITAMINS [Concomitant]
     Active Substance: VITAMINS
     Indication: NUTRITIONAL SUPPLEMENTATION
     Dosage: UNK
     Route: 048
     Dates: start: 2003

REACTIONS (5)
  - Laceration [Unknown]
  - Drug dependence [Recovered/Resolved with Sequelae]
  - Drug detoxification [Recovered/Resolved with Sequelae]
  - Off label use [Recovered/Resolved]
  - Intentional product use issue [Recovered/Resolved]

NARRATIVE: CASE EVENT DATE: 2011
